FAERS Safety Report 20142490 (Version 1)
Quarter: 2021Q4

REPORT INFORMATION
  Report Type: Spontaneous
  Country: US (occurrence: None)
  Receive Date: 20211202
  Receipt Date: 20211202
  Transmission Date: 20220303
  Serious: No
  Sender: FDA-Public Use
  Company Number: US-ROCHE-2901478

PATIENT
  Sex: Male
  Weight: 85.4 kg

DRUGS (1)
  1. EVRYSDI [Suspect]
     Active Substance: RISDIPLAM
     Indication: Spinal muscular atrophy
     Dosage: 0.75MG/ML, LAST DOSE ABOUT A WEEK AGO?ONGOING: NO
     Route: 048
     Dates: start: 20210217, end: 20210819

REACTIONS (3)
  - Urticaria [Unknown]
  - Product storage error [Unknown]
  - Product quality issue [Unknown]
